FAERS Safety Report 17642680 (Version 2)
Quarter: 2020Q2

REPORT INFORMATION
  Report Type: Report from Study
  Country: JP (occurrence: JP)
  Receive Date: 20200408
  Receipt Date: 20200415
  Transmission Date: 20200713
  Serious: Yes (Death)
  Sender: FDA-Public Use
  Company Number: JP-ROCHE-2577959

PATIENT

DRUGS (7)
  1. ATEZOLIZUMAB. [Suspect]
     Active Substance: ATEZOLIZUMAB
     Route: 041
     Dates: start: 20200225, end: 20200227
  2. ATEZOLIZUMAB. [Suspect]
     Active Substance: ATEZOLIZUMAB
     Indication: SMALL CELL LUNG CANCER EXTENSIVE STAGE
     Dosage: DOSE INTERVAL UNCERTAINTY
     Route: 041
     Dates: start: 20200203, end: 20200205
  3. CARBOPLATIN. [Suspect]
     Active Substance: CARBOPLATIN
     Indication: SMALL CELL LUNG CANCER EXTENSIVE STAGE
     Dosage: DOSE INTERVAL UNCERTAINTY
     Route: 041
     Dates: start: 20200203, end: 20200205
  4. ENTECAVIR. [Concomitant]
     Active Substance: ENTECAVIR
     Indication: HEPATITIS B
     Dosage: DOSAGE IS UNCERTAIN.
     Route: 065
  5. CARBOPLATIN. [Suspect]
     Active Substance: CARBOPLATIN
     Dosage: DOSE INTERVAL UNCERTAINTY
     Route: 041
     Dates: start: 20200225, end: 20200227
  6. ETOPOSIDE. [Suspect]
     Active Substance: ETOPOSIDE
     Dosage: DOSE INTERVAL UNCERTAINTY
     Route: 065
     Dates: start: 20200225, end: 20200227
  7. ETOPOSIDE. [Suspect]
     Active Substance: ETOPOSIDE
     Indication: SMALL CELL LUNG CANCER EXTENSIVE STAGE
     Dosage: DOSE INTERVAL UNCERTAINTY
     Route: 065
     Dates: start: 20200203, end: 20200205

REACTIONS (1)
  - Hepatic failure [Fatal]

NARRATIVE: CASE EVENT DATE: 20200316
